FAERS Safety Report 8207255-6 (Version None)
Quarter: 2012Q1

REPORT INFORMATION
  Report Type: 
  Country: None (occurrence: None)
  Receive Date: 20120314
  Receipt Date: 20120309
  Transmission Date: 20120608
  Serious: No
  Sender: FDA-Public Use
  Company Number: US-PFIZER INC-2012063537

PATIENT
  Sex: Female

DRUGS (4)
  1. NEURONTIN [Suspect]
     Indication: NEUROPATHY PERIPHERAL
     Dosage: UNK
     Route: 065
  2. ROBITUSSIN PEAK COLD MULTI-SYMPTOM COLD [Interacting]
     Indication: NASOPHARYNGITIS
     Dosage: UNK
     Route: 065
  3. ROBITUSSIN PEAK COLD MULTI-SYMPTOM COLD [Interacting]
     Indication: INFLUENZA
  4. KEFLEX [Interacting]
     Dosage: UNK
     Route: 065

REACTIONS (2)
  - HYPERTENSION [None]
  - DRUG INTERACTION [None]
